FAERS Safety Report 20369153 (Version 1)
Quarter: 2022Q1

REPORT INFORMATION
  Report Type: Spontaneous
  Country: US (occurrence: None)
  Receive Date: 20220122
  Receipt Date: 20220122
  Transmission Date: 20220423
  Serious: No
  Sender: FDA-Public Use
  Company Number: None

PATIENT
  Age: 37 Year
  Sex: Female

DRUGS (1)
  1. ABILIFY MYCITE [Suspect]
     Active Substance: ARIPIPRAZOLE
     Indication: Major depression

REACTIONS (3)
  - Medical device site irritation [None]
  - Medical device site pruritus [None]
  - Medical device site haemorrhage [None]

NARRATIVE: CASE EVENT DATE: 20211201
